FAERS Safety Report 23204547 (Version 3)
Quarter: 2023Q4

REPORT INFORMATION
  Report Type: Spontaneous
  Country: TR (occurrence: TR)
  Receive Date: 20231120
  Receipt Date: 20231214
  Transmission Date: 20240109
  Serious: No
  Sender: FDA-Public Use
  Company Number: TR-JNJFOC-20231076906

PATIENT
  Age: 5 Year
  Sex: Male

DRUGS (2)
  1. RISPERDAL [Suspect]
     Active Substance: RISPERIDONE
     Indication: Aggression
     Route: 048
  2. RISPERDAL [Suspect]
     Active Substance: RISPERIDONE
     Indication: Trisomy 21

REACTIONS (4)
  - Anger [Unknown]
  - Drug delivery system malfunction [Unknown]
  - Off label use [Unknown]
  - Product dose omission issue [Unknown]
